FAERS Safety Report 18354441 (Version 1)
Quarter: 2020Q4

REPORT INFORMATION
  Report Type: Spontaneous
  Country: IT (occurrence: IT)
  Receive Date: 20201007
  Receipt Date: 20201007
  Transmission Date: 20210114
  Serious: Yes (Hospitalization, Other)
  Sender: FDA-Public Use
  Company Number: IT-PFIZER INC-2020382601

PATIENT
  Age: 27 Year
  Sex: Male

DRUGS (4)
  1. DOXORUBICIN HCL [Suspect]
     Active Substance: DOXORUBICIN HYDROCHLORIDE
     Indication: GASTRIC CANCER
     Dosage: UNK (ON THE FIRST DAY)
     Dates: start: 198412
  2. MITOMYCIN. [Interacting]
     Active Substance: MITOMYCIN
     Indication: GASTRIC CANCER
     Dosage: UNK (ON THE FIRST DAY)
     Dates: start: 198412
  3. 5-FU [FLUOROURACIL] [Interacting]
     Active Substance: FLUOROURACIL
     Indication: GASTRIC CANCER
     Dosage: UNK (ON THE FIRST DAY)
     Dates: start: 198412
  4. 5-FU [FLUOROURACIL] [Interacting]
     Active Substance: FLUOROURACIL
     Dosage: UNK (ON THE EIGHTH DAY)
     Dates: start: 198412

REACTIONS (2)
  - Cardiotoxicity [Recovered/Resolved]
  - Drug interaction [Unknown]
